FAERS Safety Report 5506003-8 (Version None)
Quarter: 2007Q4

REPORT INFORMATION
  Report Type: 
  Country: None (occurrence: None)
  Receive Date: 20071102
  Receipt Date: 20071102
  Transmission Date: 20080405
  Serious: No
  Sender: FDA-Public Use
  Company Number: None

PATIENT
  Sex: Female
  Weight: 71.6683 kg

DRUGS (4)
  1. WELLBUTRIN XL [Suspect]
     Indication: DEPRESSION
     Dosage: 30 ONE QD PO
     Route: 048
     Dates: start: 20070209
  2. WELLBUTRIN XL [Suspect]
     Indication: MOOD SWINGS
     Dosage: 30 ONE QD PO
     Route: 048
     Dates: start: 20070209
  3. WELLBUTRIN XL [Suspect]
     Indication: DEPRESSION
     Dosage: 30 ONE QD PO
     Route: 048
     Dates: start: 20070228
  4. WELLBUTRIN XL [Suspect]
     Indication: MOOD SWINGS
     Dosage: 30 ONE QD PO
     Route: 048
     Dates: start: 20070228

REACTIONS (2)
  - DEPRESSION [None]
  - MOOD SWINGS [None]
